FAERS Safety Report 10779089 (Version 1)
Quarter: 2015Q1

REPORT INFORMATION
  Report Type: Spontaneous
  Country: DE (occurrence: DE)
  Receive Date: 20150210
  Receipt Date: 20150210
  Transmission Date: 20150721
  Serious: Yes (Other)
  Sender: FDA-Public Use
  Company Number: DE-JNJFOC-20140700309

PATIENT
  Age: 44 Year
  Sex: Female
  Weight: 76 kg

DRUGS (16)
  1. METHOTREXATE [Concomitant]
     Active Substance: METHOTREXATE
     Route: 048
  2. PREDNISOLON [Concomitant]
     Active Substance: PREDNISOLONE
     Route: 065
  3. STELARA [Suspect]
     Active Substance: USTEKINUMAB
     Indication: SAPHO SYNDROME
     Route: 058
     Dates: start: 20140428, end: 20140428
  4. VALSARTAN. [Concomitant]
     Active Substance: VALSARTAN
     Dosage: 40 (UNITS UNSPECIFIED)
     Route: 065
  5. PREDNISOLON [Concomitant]
     Active Substance: PREDNISOLONE
     Route: 065
  6. PANTOZOL [Concomitant]
     Active Substance: PANTOPRAZOLE SODIUM
     Dosage: 20, 1-0-1
     Route: 065
  7. PREDNISOLON [Concomitant]
     Active Substance: PREDNISOLONE
     Route: 065
  8. METHOTREXATE [Concomitant]
     Active Substance: METHOTREXATE
     Route: 048
  9. JANUVIA [Concomitant]
     Active Substance: SITAGLIPTIN PHOSPHATE
     Dosage: 50 1/2-0-1/2
     Route: 065
  10. TILIDIN [Concomitant]
     Active Substance: NALOXONE HYDROCHLORIDE\TILIDINE HYDROCHLORIDE
     Dosage: 50, 1-0-2
     Route: 065
  11. STELARA [Suspect]
     Active Substance: USTEKINUMAB
     Indication: PSORIATIC ARTHROPATHY
     Route: 058
     Dates: start: 20140428, end: 20140428
  12. METFORMIN [Concomitant]
     Active Substance: METFORMIN HYDROCHLORIDE
     Route: 065
  13. FOLSAN [Concomitant]
     Active Substance: FOLIC ACID
     Route: 048
  14. STELARA [Suspect]
     Active Substance: USTEKINUMAB
     Indication: SAPHO SYNDROME
     Route: 058
     Dates: start: 20140526, end: 20140526
  15. STELARA [Suspect]
     Active Substance: USTEKINUMAB
     Indication: PSORIATIC ARTHROPATHY
     Route: 058
     Dates: start: 20140526, end: 20140526
  16. SORTIS (ATORVASTATIN) [Concomitant]
     Active Substance: ATORVASTATIN
     Dosage: 20, 0-0-1
     Route: 065

REACTIONS (7)
  - Joint range of motion decreased [Recovering/Resolving]
  - Synovitis [Recovering/Resolving]
  - Drug ineffective [Not Recovered/Not Resolved]
  - Product use issue [Unknown]
  - Osteitis [Recovering/Resolving]
  - Haemoglobin decreased [Unknown]
  - C-reactive protein increased [Recovering/Resolving]

NARRATIVE: CASE EVENT DATE: 201405
